FAERS Safety Report 25189628 (Version 1)
Quarter: 2025Q2

REPORT INFORMATION
  Report Type: Spontaneous
  Country: CA (occurrence: CA)
  Receive Date: 20250411
  Receipt Date: 20250411
  Transmission Date: 20250716
  Serious: Yes (Hospitalization, Other)
  Sender: ACCORD
  Company Number: None

PATIENT
  Age: 7 Decade
  Sex: Female

DRUGS (2)
  1. TACROLIMUS [Suspect]
     Active Substance: TACROLIMUS
     Indication: Renal transplant
     Route: 048
  2. PREDNISONE [Concomitant]
     Active Substance: PREDNISONE
     Indication: Renal transplant
     Route: 048

REACTIONS (9)
  - Bacterial infection [Recovered/Resolved]
  - Listeriosis [Recovered/Resolved]
  - Peritonitis bacterial [Recovered/Resolved]
  - Staphylococcal infection [Recovered/Resolved]
  - Infection [Recovered/Resolved]
  - Peritoneal dialysis complication [Recovered/Resolved]
  - Catheter site infection [Recovered/Resolved]
  - Pneumocystis jirovecii pneumonia [Recovered/Resolved]
  - Disseminated herpes simplex [Recovered/Resolved]
